FAERS Safety Report 6509429-9 (Version None)
Quarter: 2009Q4

REPORT INFORMATION
  Report Type: 
  Country: None (occurrence: None)
  Receive Date: 20091222
  Receipt Date: 20091211
  Transmission Date: 20100525
  Serious: Yes (Hospitalization)
  Sender: FDA-Public Use
  Company Number: NL-JNJFOC-20091204189

PATIENT
  Sex: Male

DRUGS (8)
  1. REMICADE [Suspect]
     Indication: ANKYLOSING SPONDYLITIS
     Route: 042
  2. ISONIAZID [Concomitant]
  3. NAPROXEN [Concomitant]
  4. PYRIDOXINE HCL [Concomitant]
  5. COVERSYL [Concomitant]
  6. METOPROLOL TARTRATE [Concomitant]
  7. CHLOORTALIDON [Concomitant]
  8. OXAZEPAM [Concomitant]

REACTIONS (1)
  - SMALL CELL LUNG CANCER METASTATIC [None]
